FAERS Safety Report 6885251-9 (Version None)
Quarter: 2010Q3

REPORT INFORMATION
  Report Type: 
  Country: None (occurrence: None)
  Receive Date: 20100729
  Receipt Date: 20100729
  Transmission Date: 20110219
  Serious: Yes (Other)
  Sender: FDA-Public Use
  Company Number: None

PATIENT

DRUGS (1)
  1. VESICARE [Suspect]
     Indication: URINARY TRACT DISORDER
     Dosage: 1 DAILY PO - A FEW WEEKS
     Route: 048
     Dates: start: 20090601, end: 20090629

REACTIONS (1)
  - OEDEMA PERIPHERAL [None]
